FAERS Safety Report 16167328 (Version 1)
Quarter: 2019Q2

REPORT INFORMATION
  Report Type: Spontaneous
  Country: IT (occurrence: IT)
  Receive Date: 20190408
  Receipt Date: 20190408
  Transmission Date: 20190711
  Serious: Yes (Other)
  Sender: FDA-Public Use
  Company Number: IT-AUROBINDO-AUR-APL-2019-017886

PATIENT

DRUGS (2)
  1. OXALIPLATIN. [Suspect]
     Active Substance: OXALIPLATIN
     Indication: COLON CANCER
     Dosage: 208 MILLIGRAM, CYCLICAL
     Route: 042
     Dates: start: 20181128
  2. CAPECITABINE. [Suspect]
     Active Substance: CAPECITABINE
     Indication: COLON CANCER
     Dosage: 2 GRAM, ONCE A DAY
     Route: 065
     Dates: start: 20181128

REACTIONS (2)
  - Respiratory failure [Recovered/Resolved]
  - Bronchospasm [Recovered/Resolved]

NARRATIVE: CASE EVENT DATE: 20190110
